FAERS Safety Report 8546627-7 (Version None)
Quarter: 2012Q3

REPORT INFORMATION
  Report Type: 
  Country: None (occurrence: None)
  Receive Date: 20120727
  Receipt Date: 20120103
  Transmission Date: 20120928
  Serious: No
  Sender: FDA-Public Use
  Company Number: US-ASTRAZENECA-2012SE00539

PATIENT
  Age: 57 Year
  Sex: Female
  Weight: 54.4 kg

DRUGS (3)
  1. SEROQUEL XR [Suspect]
     Indication: BIPOLAR DISORDER
     Route: 048
  2. LISINOPRIL [Concomitant]
  3. METOPROLOL TARTRATE [Concomitant]

REACTIONS (1)
  - PNEUMONIA [None]
